FAERS Safety Report 7123534-8 (Version None)
Quarter: 2010Q4

REPORT INFORMATION
  Report Type: 
  Country: None (occurrence: None)
  Receive Date: 20101125
  Receipt Date: 20101118
  Transmission Date: 20110411
  Serious: Yes (Death)
  Sender: FDA-Public Use
  Company Number: JP-SHIRE-SPV1-2010-02042

PATIENT
  Age: 55 Year
  Sex: Male

DRUGS (19)
  1. FOSRENOL [Suspect]
     Indication: HYPERPHOSPHATAEMIA
     Dosage: 2250 MG, 1X/DAY:QD
     Route: 048
     Dates: start: 20090715
  2. FOSRENOL [Suspect]
     Dosage: 1500 MG, 1X/DAY:QD
     Route: 048
     Dates: start: 20090617, end: 20090715
  3. FOSRENOL [Suspect]
     Dosage: 750 MG, 1X/DAY:QD
     Route: 048
     Dates: start: 20090513, end: 20090617
  4. CALTAN [Concomitant]
     Indication: HYPERPHOSPHATAEMIA
     Dosage: 3 G, UNKNOWN
     Route: 048
     Dates: start: 20060510
  5. RENAGEL                            /01459901/ [Concomitant]
     Indication: HYPERPHOSPHATAEMIA
     Dosage: 6000 MG, UNK
     Route: 048
     Dates: start: 20091104, end: 20100321
  6. RENAGEL                            /01459901/ [Concomitant]
     Dosage: 7500 MG, UNKNOWN
     Dates: start: 20070119
  7. ROCALTROL [Concomitant]
     Indication: PRODUCT USED FOR UNKNOWN INDICATION
     Dosage: 0.5 UNK, UNKNOWN
     Route: 048
     Dates: start: 20051109, end: 20100321
  8. REGPARA [Concomitant]
     Indication: HYPERPARATHYROIDISM SECONDARY
     Dosage: 50 MG, UNKNOWN
     Route: 048
     Dates: start: 20091202, end: 20100321
  9. NIFELAT                            /00340701/ [Concomitant]
     Indication: PRODUCT USED FOR UNKNOWN INDICATION
     Dosage: 40 MG, UNKNOWN
     Route: 048
  10. AMLODIPINE [Concomitant]
     Indication: PRODUCT USED FOR UNKNOWN INDICATION
     Dosage: 10 MG, UNKNOWN
     Route: 048
  11. FERROMIA                           /00023516/ [Concomitant]
     Indication: PRODUCT USED FOR UNKNOWN INDICATION
     Dosage: 200 MG, UNKNOWN
     Route: 048
  12. DIOVAN [Concomitant]
     Indication: PRODUCT USED FOR UNKNOWN INDICATION
     Dosage: 160 MG, UNKNOWN
     Route: 048
  13. ZYLORIC [Concomitant]
     Indication: PRODUCT USED FOR UNKNOWN INDICATION
     Dosage: 100 MG, UNKNOWN
     Route: 048
  14. ARTIST [Concomitant]
     Indication: PRODUCT USED FOR UNKNOWN INDICATION
     Dosage: 20 MG, UNKNOWN
     Route: 048
  15. FLUITRAN [Concomitant]
     Indication: PRODUCT USED FOR UNKNOWN INDICATION
     Dosage: 4 MG, UNKNOWN
     Route: 048
  16. ATELEC [Concomitant]
     Dosage: 10 MG, UNKNOWN
     Route: 048
  17. LASIX [Concomitant]
     Indication: PRODUCT USED FOR UNKNOWN INDICATION
     Dosage: 200 MG, UNKNOWN
     Route: 048
  18. CINAL [Concomitant]
     Indication: PRODUCT USED FOR UNKNOWN INDICATION
     Dosage: 600 MG, UNKNOWN
     Route: 048
  19. ALESION [Concomitant]
     Indication: PRODUCT USED FOR UNKNOWN INDICATION
     Dosage: 20 MG, UNKNOWN
     Route: 048

REACTIONS (1)
  - CARDIAC FAILURE ACUTE [None]
